FAERS Safety Report 10024778 (Version 2)
Quarter: 2014Q2

REPORT INFORMATION
  Report Type: Spontaneous
  Country: DE (occurrence: DE)
  Receive Date: 20140320
  Receipt Date: 20140414
  Transmission Date: 20141212
  Serious: Yes (Death, Hospitalization)
  Sender: FDA-Public Use
  Company Number: DE-BAYER-2014-040930

PATIENT
  Age: 70 Year
  Sex: 0
  Weight: 73 kg

DRUGS (2)
  1. XOFIGO [Suspect]
     Indication: PROSTATE CANCER STAGE IV
     Dosage: 1 DF, BID
     Dates: end: 20140220
  2. XOFIGO [Suspect]
     Indication: METASTASES TO BONE

REACTIONS (2)
  - Subdural haematoma [Unknown]
  - Death [Fatal]
